FAERS Safety Report 23286525 (Version 2)
Quarter: 2024Q1

REPORT INFORMATION
  Report Type: Spontaneous
  Country: US (occurrence: US)
  Receive Date: 20231212
  Receipt Date: 20240119
  Transmission Date: 20240410
  Serious: Yes (Hospitalization, Other)
  Sender: FDA-Public Use
  Company Number: US-MLMSERVICE-20231130-4697522-1

PATIENT
  Age: 55 Year
  Sex: Female

DRUGS (2)
  1. ENVARSUS XR [Suspect]
     Active Substance: TACROLIMUS
     Indication: Immunosuppressant drug therapy
     Dosage: UNK
  2. MYFORTIC [Suspect]
     Active Substance: MYCOPHENOLATE SODIUM
     Indication: Immunosuppressant drug therapy
     Dosage: UNK

REACTIONS (11)
  - Haemophagocytic lymphohistiocytosis [Recovered/Resolved]
  - Pulmonary haemorrhage [Recovered/Resolved]
  - Ischaemic hepatitis [Recovered/Resolved]
  - Multiple organ dysfunction syndrome [Recovered/Resolved]
  - Acute respiratory failure [Recovered/Resolved]
  - Acute kidney injury [Recovered/Resolved]
  - Aspergillus infection [Recovered/Resolved]
  - Septic shock [Recovered/Resolved]
  - Human ehrlichiosis [Recovered/Resolved]
  - Confusional state [Recovered/Resolved]
  - Off label use [Unknown]
